FAERS Safety Report 11411113 (Version 2)
Quarter: 2015Q3

REPORT INFORMATION
  Report Type: Spontaneous
  Country: US (occurrence: US)
  Receive Date: 20150821
  Receipt Date: 20150903
  Transmission Date: 20151125
  Serious: No
  Sender: FDA-Public Use
  Company Number: US-ELI_LILLY_AND_COMPANY-US201003007273

PATIENT
  Sex: Female

DRUGS (6)
  1. APIDRA [Concomitant]
     Active Substance: INSULIN GLULISINE
     Dates: start: 200910
  2. LEVEMIR [Concomitant]
     Active Substance: INSULIN DETEMIR
     Dates: start: 200910
  3. HUMULIN 70/30 [Suspect]
     Active Substance: INSULIN HUMAN
     Dosage: 25 U, EACH EVENING
     Dates: start: 200912
  4. NOVOLOG [Concomitant]
     Active Substance: INSULIN ASPART
     Dates: start: 200910
  5. HUMULIN 70/30 [Suspect]
     Active Substance: INSULIN HUMAN
     Dosage: 30 U, EACH MORNING
     Dates: start: 200912
  6. HUMALOG [Suspect]
     Active Substance: INSULIN LISPRO
     Dates: start: 200909, end: 200910

REACTIONS (4)
  - Glycosylated haemoglobin increased [Unknown]
  - Hypersensitivity [Unknown]
  - Fear [Unknown]
  - Hypersensitivity [Unknown]

NARRATIVE: CASE EVENT DATE: 200909
